FAERS Safety Report 16491927 (Version 1)
Quarter: 2019Q2

REPORT INFORMATION
  Report Type: Spontaneous
  Country: CH (occurrence: CH)
  Receive Date: 20190628
  Receipt Date: 20190628
  Transmission Date: 20190711
  Serious: Yes (Life-Threatening, Other)
  Sender: FDA-Public Use
  Company Number: CH-ASTRAZENECA-2019SE92069

PATIENT
  Age: 16833 Day
  Sex: Male

DRUGS (18)
  1. CETIRIZINE [Concomitant]
     Active Substance: CETIRIZINE HYDROCHLORIDE
     Dosage: IN RESERVE
  2. DORMICUM [Concomitant]
     Dosage: IN RESERVE
  3. ANXIOLIT [Concomitant]
     Active Substance: OXAZEPAM
  4. SERTRALINE [Interacting]
     Active Substance: SERTRALINE HYDROCHLORIDE
     Route: 048
     Dates: start: 20190606, end: 20190608
  5. MOVICOL [Concomitant]
     Active Substance: POLYETHYLENE GLYCOL 3350\POTASSIUM CHLORIDE\SODIUM BICARBONATE\SODIUM CHLORIDE
     Dosage: IN RESERVE
  6. SEVREDOL [Concomitant]
     Active Substance: MORPHINE
     Dosage: 30.0MG UNKNOWN
     Route: 048
     Dates: end: 20190608
  7. SEVREDOL [Concomitant]
     Active Substance: MORPHINE
     Dosage: 20.0MG UNKNOWN
     Route: 048
     Dates: start: 20190608
  8. GUTRON [Interacting]
     Active Substance: MIDODRINE
     Route: 048
     Dates: end: 20190608
  9. CLEXANE [Concomitant]
     Active Substance: ENOXAPARIN SODIUM
  10. NEXIUM-MUPS (ESOMEPRAZOLE) [Suspect]
     Active Substance: ESOMEPRAZOLE
     Route: 048
     Dates: start: 20190607
  11. ONDANSETRON [Interacting]
     Active Substance: ONDANSETRON
     Dosage: 4 MG THREE TIMES A DAY IN RESERVE
     Route: 048
     Dates: end: 20190608
  12. DAFALGAN [Concomitant]
     Active Substance: ACETAMINOPHEN
  13. SORBITOL. [Concomitant]
     Active Substance: SORBITOL
  14. ACIDUM FOLICUM [Concomitant]
     Active Substance: FOLIC ACID
  15. TEMESTA EXPIDET [Concomitant]
     Active Substance: LORAZEPAM
     Dosage: IN TOTAL
     Dates: start: 20190607, end: 20190607
  16. SIRDALUD [Concomitant]
     Active Substance: TIZANIDINE
     Dates: end: 20190608
  17. LUVIT D3 [Concomitant]
     Active Substance: CHOLECALCIFEROL
  18. PRADIF T [Concomitant]
     Active Substance: TAMSULOSIN HYDROCHLORIDE
     Dates: end: 20190608

REACTIONS (10)
  - Tremor [Recovered/Resolved]
  - Anxiety [Recovered/Resolved]
  - Akathisia [Recovered/Resolved]
  - Serotonin syndrome [Recovered/Resolved]
  - Vomiting [Recovered/Resolved]
  - Nausea [Recovered/Resolved]
  - Extensor plantar response [Recovered/Resolved]
  - Hyperhidrosis [Recovered/Resolved]
  - Drug interaction [Recovered/Resolved]
  - Agitation [Recovered/Resolved]

NARRATIVE: CASE EVENT DATE: 20190608
